FAERS Safety Report 22104980 (Version 2)
Quarter: 2023Q1

REPORT INFORMATION
  Report Type: Spontaneous
  Country: US (occurrence: US)
  Receive Date: 20230316
  Receipt Date: 20230316
  Transmission Date: 20230418
  Serious: No
  Sender: FDA-Public Use
  Company Number: US-ALLERGAN-2303285US

PATIENT
  Sex: Female

DRUGS (7)
  1. DURYSTA [Suspect]
     Active Substance: BIMATOPROST
     Indication: Glaucoma
     Dosage: 0.01 MG, SINGLE
     Route: 031
     Dates: start: 20221213, end: 20221213
  2. DURYSTA [Suspect]
     Active Substance: BIMATOPROST
     Indication: Intraocular pressure increased
  3. DURYSTA [Suspect]
     Active Substance: BIMATOPROST
     Indication: Glaucoma
     Dosage: 0.01 MG, SINGLE
     Route: 031
     Dates: start: 20221215, end: 20221215
  4. DURYSTA [Suspect]
     Active Substance: BIMATOPROST
     Indication: Intraocular pressure increased
  5. LATANOPROST [Suspect]
     Active Substance: LATANOPROST
     Indication: Product used for unknown indication
  6. BRIMONIDINE [Suspect]
     Active Substance: BRIMONIDINE TARTRATE
     Indication: Product used for unknown indication
  7. DORZOLAMIDE [Suspect]
     Active Substance: DORZOLAMIDE
     Indication: Product used for unknown indication

REACTIONS (1)
  - Intraocular pressure increased [Unknown]

NARRATIVE: CASE EVENT DATE: 20221201
